FAERS Safety Report 10244000 (Version 1)
Quarter: 2014Q2

REPORT INFORMATION
  Report Type: Other
  Country: DE (occurrence: DE)
  Receive Date: 20140618
  Receipt Date: 20140618
  Transmission Date: 20141212
  Serious: No
  Sender: FDA-Public Use
  Company Number: DE-LUPIN PHARMACEUTICALS INC.-E2B_00001250

PATIENT
  Sex: Female
  Weight: 90 kg

DRUGS (4)
  1. EZETROL [Suspect]
     Indication: HYPERLIPIDAEMIA
     Route: 065
     Dates: start: 2008
  2. SORTIS [Suspect]
     Indication: HYPERLIPIDAEMIA
     Route: 065
  3. SIMVASTATIN [Suspect]
     Indication: HYPERLIPIDAEMIA
     Route: 065
  4. LOCOL 20MG [Suspect]
     Indication: HYPERLIPIDAEMIA
     Route: 065
     Dates: end: 2012

REACTIONS (2)
  - Muscle spasms [Recovered/Resolved]
  - Myalgia [Recovered/Resolved]
